FAERS Safety Report 24367946 (Version 2)
Quarter: 2024Q4

REPORT INFORMATION
  Report Type: Report from Study
  Country: GB (occurrence: GB)
  Receive Date: 20240926
  Receipt Date: 20241004
  Transmission Date: 20250115
  Serious: Yes (Hospitalization, Other)
  Sender: NOVARTIS
  Company Number: GB-002147023-NVSC2024GB175771

PATIENT
  Age: 52 Year
  Sex: Female

DRUGS (3)
  1. COSENTYX [Suspect]
     Active Substance: SECUKINUMAB
     Indication: Ankylosing spondylitis
     Dosage: MAINTENANCE INJECTION 300 MG
     Route: 065
  2. COSENTYX [Suspect]
     Active Substance: SECUKINUMAB
     Indication: Psoriasis
     Dosage: UNK
     Route: 065
     Dates: start: 20240717
  3. CYCLOSPORINE [Concomitant]
     Active Substance: CYCLOSPORINE
     Indication: Product used for unknown indication
     Dosage: UNK
     Route: 065

REACTIONS (7)
  - Pyrexia [Recovered/Resolved]
  - Meningitis [Recovered/Resolved]
  - Inflammatory marker increased [Not Recovered/Not Resolved]
  - Sinusitis [Recovered/Resolved]
  - Malaise [Unknown]
  - Illness [Recovered/Resolved]
  - Diarrhoea [Recovered/Resolved]

NARRATIVE: CASE EVENT DATE: 20240830
